FAERS Safety Report 20883315 (Version 10)
Quarter: 2025Q3

REPORT INFORMATION
  Report Type: Spontaneous
  Country: GB (occurrence: GB)
  Receive Date: 20220527
  Receipt Date: 20250708
  Transmission Date: 20251021
  Serious: Yes (Hospitalization)
  Sender: JOHNSON AND JOHNSON
  Company Number: GB-009507513-2205GBR003195

PATIENT
  Age: 74 Year
  Sex: Female
  Weight: 99 kg

DRUGS (15)
  1. XARELTO [Suspect]
     Active Substance: RIVAROXABAN
     Indication: Atrial fibrillation
     Dosage: 20 MG, QD
     Route: 048
     Dates: start: 20210514, end: 20220509
  2. PERINDOPRIL ERBUMINE [Concomitant]
     Active Substance: PERINDOPRIL ERBUMINE
     Indication: Cardiac failure
     Dosage: 8 MG, QD
     Route: 048
     Dates: start: 20081117
  3. FOLIC ACID [Concomitant]
     Active Substance: FOLIC ACID
     Indication: Pernicious anaemia
     Dosage: 5 MG, QD
     Route: 048
     Dates: start: 20140623
  4. INSULIN HUMAN [Concomitant]
     Active Substance: INSULIN HUMAN
     Indication: Type 2 diabetes mellitus
     Dosage: 66 IU, QD
     Route: 058
     Dates: start: 20210628, end: 20220519
  5. BISOPROLOL [Concomitant]
     Active Substance: BISOPROLOL
     Indication: Atrial fibrillation
     Dosage: 2.5 MG, QD
     Route: 048
     Dates: start: 20210514
  6. LANSOPRAZOLE [Concomitant]
     Active Substance: LANSOPRAZOLE
     Indication: Gastrointestinal disorder prophylaxis
     Dosage: 30 MG, QD
     Route: 048
     Dates: start: 20210518
  7. SPIRONOLACTONE [Concomitant]
     Active Substance: SPIRONOLACTONE
     Indication: Cardiac failure
     Dosage: 25 MG, QD
     Route: 048
     Dates: start: 20210722
  8. BUMETANIDE [Concomitant]
     Active Substance: BUMETANIDE
     Indication: Oedema
     Dosage: 1 MG, QD
     Route: 048
     Dates: start: 20220301
  9. MINERAL OIL [Concomitant]
     Active Substance: MINERAL OIL
     Indication: Dry skin
     Route: 061
     Dates: start: 20210517
  10. POLYETHYLENE GLYCOLS [Concomitant]
     Active Substance: POLYETHYLENE GLYCOLS
     Indication: Constipation
     Dosage: 2 DF, QD
     Route: 048
     Dates: start: 20210518
  11. POLYETHYLENE GLYCOLS [Concomitant]
     Active Substance: POLYETHYLENE GLYCOLS
     Dosage: 1 DF, BID
     Dates: start: 20210518
  12. ACETAMINOPHEN [Concomitant]
     Active Substance: ACETAMINOPHEN
     Indication: Arthralgia
     Dosage: 1 G, QID
     Route: 048
     Dates: start: 20210518
  13. SENNOSIDES A AND B [Concomitant]
     Active Substance: SENNOSIDES A AND B
     Indication: Constipation
     Dosage: 15 MG, QD
     Route: 048
     Dates: start: 20210722
  14. LORAZEPAM [Concomitant]
     Active Substance: LORAZEPAM
     Indication: Anxiety
     Route: 048
     Dates: start: 20210302
  15. LORAZEPAM [Concomitant]
     Active Substance: LORAZEPAM
     Indication: Sleep disorder therapy

REACTIONS (1)
  - Anaemia [Recovered/Resolved]

NARRATIVE: CASE EVENT DATE: 20220509
